FAERS Safety Report 8324338-0 (Version None)
Quarter: 2012Q2

REPORT INFORMATION
  Report Type: 
  Country: None (occurrence: None)
  Receive Date: 20120430
  Receipt Date: 20120430
  Transmission Date: 20120825
  Serious: Yes (Other)
  Sender: FDA-Public Use
  Company Number: None

PATIENT
  Age: 68 Year
  Sex: Male

DRUGS (1)
  1. CIMZIA [Suspect]
     Indication: CROHN'S DISEASE
     Dosage: 400MG Q MO SQ
     Route: 058
     Dates: start: 20120201, end: 20120401

REACTIONS (2)
  - DRUG INEFFECTIVE [None]
  - DIARRHOEA [None]
